FAERS Safety Report 7908545-4 (Version None)
Quarter: 2011Q4

REPORT INFORMATION
  Report Type: 
  Country: None (occurrence: None)
  Receive Date: 20111111
  Receipt Date: 20111108
  Transmission Date: 20120403
  Serious: Yes (Hospitalization, Disabling, Other)
  Sender: FDA-Public Use
  Company Number: US-PFIZER INC-2011199212

PATIENT
  Sex: Female

DRUGS (2)
  1. CHANTIX [Suspect]
     Indication: SMOKING CESSATION THERAPY
     Dosage: UNK
     Dates: start: 20061201
  2. XANAX [Concomitant]
     Indication: ANXIETY
     Dosage: UNK
     Dates: start: 20050101

REACTIONS (5)
  - SUICIDAL IDEATION [None]
  - SCHIZOAFFECTIVE DISORDER [None]
  - DEPRESSION [None]
  - MENTAL DISORDER [None]
  - ANXIETY [None]
